FAERS Safety Report 6418478 (Version 2)
Quarter: 2013Q1

REPORT INFORMATION
  Report Type: Spontaneous
  Country: DK (occurrence: DK)
  Receive Date: 20070918
  Receipt Date: 20130122
  Transmission Date: 20140127
  Serious: Yes (Hospitalization, Other)
  Sender: FDA-Public Use
  Company Number: DK-PFIZER INC-2007075108

PATIENT
  Age: 41 Year
  Sex: Male

DRUGS (1)
  1. VIAGRA [Suspect]
     Indication: ERECTILE DYSFUNCTION
     Route: 048
     Dates: start: 200608

REACTIONS (6)
  - Ventricular tachycardia [Recovered/Resolved]
  - Syncope [Unknown]
  - Troponin T increased [Unknown]
  - Blood creatine phosphokinase MB increased [Unknown]
  - Cardiac hypertrophy [Unknown]
  - Restrictive cardiomyopathy [Unknown]
